FAERS Safety Report 6658187-6 (Version None)
Quarter: 2010Q1

REPORT INFORMATION
  Report Type: 
  Country: None (occurrence: None)
  Receive Date: 20100330
  Receipt Date: 20100325
  Transmission Date: 20100710
  Serious: Yes (Hospitalization)
  Sender: FDA-Public Use
  Company Number: B0643711A

PATIENT
  Age: 22 Year
  Sex: Male

DRUGS (2)
  1. PAROXETINE HCL [Suspect]
     Indication: DEPRESSION
     Dosage: 20MG SINGLE DOSE
     Route: 065
  2. ACETAMINOPHEN + CHLORPHENIRAMINE + PHENYLEPHRINE [Suspect]
     Indication: INFLUENZA LIKE ILLNESS
     Route: 065

REACTIONS (28)
  - ALANINE AMINOTRANSFERASE INCREASED [None]
  - ANXIETY [None]
  - ASPARTATE AMINOTRANSFERASE INCREASED [None]
  - BLOOD CREATINE PHOSPHOKINASE INCREASED [None]
  - BLOOD CREATININE INCREASED [None]
  - BLOOD LACTATE DEHYDROGENASE INCREASED [None]
  - CHILLS [None]
  - CHROMATURIA [None]
  - CONFUSIONAL STATE [None]
  - DISORIENTATION [None]
  - DRUG INTERACTION [None]
  - FATIGUE [None]
  - HAEMODIALYSIS [None]
  - HYPERTHERMIA [None]
  - LOSS OF CONSCIOUSNESS [None]
  - MOOD ALTERED [None]
  - MYDRIASIS [None]
  - MYOCLONUS [None]
  - MYOGLOBINURIA [None]
  - NAUSEA [None]
  - PNEUMONIA [None]
  - PYREXIA [None]
  - RENAL FAILURE ACUTE [None]
  - RHABDOMYOLYSIS [None]
  - SEROTONIN SYNDROME [None]
  - TREMOR [None]
  - VOMITING [None]
  - WHITE BLOOD CELL COUNT INCREASED [None]
